FAERS Safety Report 6969175-4 (Version None)
Quarter: 2010Q3

REPORT INFORMATION
  Report Type: 
  Country: None (occurrence: None)
  Receive Date: 20100907
  Receipt Date: 20100831
  Transmission Date: 20110219
  Serious: Yes (Hospitalization)
  Sender: FDA-Public Use
  Company Number: PHHY2010AU32766

PATIENT
  Sex: Male

DRUGS (3)
  1. CLOZARIL [Suspect]
     Dosage: 400 MG, UNK
     Dates: start: 20090930
  2. CLOZARIL [Suspect]
     Dosage: 450 MG, UNK
  3. CLOZARIL [Suspect]
     Dosage: 200 MG, UNK

REACTIONS (2)
  - NEUTROPHIL COUNT DECREASED [None]
  - SCHIZOPHRENIA [None]
